FAERS Safety Report 9957343 (Version 2)
Quarter: 2014Q1

REPORT INFORMATION
  Report Type: Report from Study
  Country: US (occurrence: US)
  Receive Date: 20140304
  Receipt Date: 20140304
  Transmission Date: 20141002
  Serious: No
  Sender: FDA-Public Use
  Company Number: US-ABBVIE-13P-163-1082805-00

PATIENT
  Age: 68 Year
  Sex: Female

DRUGS (8)
  1. HUMIRA [Suspect]
     Indication: CROHN^S DISEASE
     Dosage: DAY 1
     Route: 058
     Dates: start: 20130429, end: 20130429
  2. HUMIRA [Suspect]
     Dosage: DAY 15
     Route: 058
  3. HUMIRA [Suspect]
     Route: 058
  4. ATENOLOL [Concomitant]
     Indication: PALPITATIONS
  5. LEVOXYL [Concomitant]
     Indication: THYROID DISORDER
     Dosage: 1 TABLET 5DAYS/WEEK
  6. PENTASA [Concomitant]
     Indication: ANTIINFLAMMATORY THERAPY
  7. CALCIUM 600 PLUS VITAMIN D [Concomitant]
     Indication: OSTEOPENIA
     Dosage: CALCIUM600 WITH VITAMIN D 200IU
  8. VITAMIN D3 [Concomitant]
     Indication: PRODUCT USED FOR UNKNOWN INDICATION

REACTIONS (2)
  - Injection site pain [Recovered/Resolved]
  - Injection site haemorrhage [Recovered/Resolved]
